FAERS Safety Report 5624317-8 (Version None)
Quarter: 2008Q1

REPORT INFORMATION
  Report Type: 
  Country: None (occurrence: None)
  Receive Date: 20080213
  Receipt Date: 20080130
  Transmission Date: 20080703
  Serious: Yes (Other)
  Sender: FDA-Public Use
  Company Number: US-ELI_LILLY_AND_COMPANY-US200801006653

PATIENT
  Sex: Female
  Weight: 72.562 kg

DRUGS (17)
  1. BYETTA [Suspect]
     Dosage: 5 UG, 2/D
     Route: 058
     Dates: start: 20060701, end: 20060801
  2. BYETTA [Suspect]
     Dosage: 10 UG, 2/D
     Route: 058
     Dates: start: 20060801, end: 20080116
  3. LEVEMIR [Concomitant]
     Indication: DIABETES MELLITUS
     Dosage: 50 U, EACH EVENING
     Route: 058
  4. LORCET [Concomitant]
     Dosage: UNK, 3/D
     Route: 048
  5. AMBIEN [Concomitant]
     Dosage: 12.5 UNK, EACH EVENING
     Route: 048
  6. LASIX [Concomitant]
     Dosage: 40 MG, DAILY (1/D)
     Route: 048
  7. METFORMIN HCL [Concomitant]
     Indication: DIABETES MELLITUS
     Dosage: 1000 MG, 2/D
     Route: 048
  8. PREVACID [Concomitant]
     Indication: GASTROOESOPHAGEAL REFLUX DISEASE
     Dosage: 30 MG, 2/D
     Route: 048
  9. LIPITOR [Concomitant]
     Indication: BLOOD CHOLESTEROL
     Dosage: 20 MG, QOD
     Route: 048
  10. ATACAND [Concomitant]
     Indication: HYPERTENSION
     Dosage: 8 MG, DAILY (1/D)
     Route: 048
  11. TOPROL-XL [Concomitant]
     Indication: HYPERTENSION
     Dosage: 50 MG, DAILY (1/D)
     Route: 048
  12. VITAMIN B-12 [Concomitant]
     Indication: ANAEMIA VITAMIN B12 DEFICIENCY
     Dosage: UNK, MONTHLY (1/M)
  13. OMACOR [Concomitant]
     Indication: HYPERTENSION
     Dosage: 1 MG, 2/D
     Route: 048
  14. KLOR-CON [Concomitant]
     Dosage: 10 MEQ, DAILY (1/D)
  15. ASPIRIN [Concomitant]
     Indication: PROPHYLAXIS
     Dosage: 81 MG, DAILY (1/D)
     Route: 048
  16. TRICOR [Concomitant]
     Dosage: 145 MG, DAILY (1/D)
  17. MULTIVITAMINS AND IRON [Concomitant]
     Dosage: UNK, UNKNOWN
     Route: 065

REACTIONS (3)
  - ABDOMINAL PAIN UPPER [None]
  - LIPASE INCREASED [None]
  - PANCREATITIS [None]
